FAERS Safety Report 6665097-7 (Version None)
Quarter: 2010Q2

REPORT INFORMATION
  Report Type: 
  Country: None (occurrence: None)
  Receive Date: 20100402
  Receipt Date: 20100326
  Transmission Date: 20101027
  Serious: No
  Sender: FDA-Public Use
  Company Number: 2009BI022618

PATIENT
  Age: 25 Year
  Sex: Female

DRUGS (2)
  1. TYSABRI [Suspect]
     Indication: MULTIPLE SCLEROSIS
     Route: 042
     Dates: start: 20070322, end: 20090319
  2. TYSABRI [Suspect]
     Route: 042
     Dates: start: 20090602

REACTIONS (3)
  - INSOMNIA [None]
  - MUSCLE SPASMS [None]
  - VOMITING [None]
